FAERS Safety Report 16964207 (Version 1)
Quarter: 2019Q4

REPORT INFORMATION
  Report Type: Spontaneous
  Country: US (occurrence: US)
  Receive Date: 20190909
  Receipt Date: 20190909
  Transmission Date: 20200122
  Serious: No
  Sender: FDA-Public Use
  Company Number: None

PATIENT
  Age: 19 Year
  Sex: Male

DRUGS (2)
  1. PRE-PEN [Suspect]
     Active Substance: BENZYLPENICILLOYL POLYLYSINE
     Indication: ALLERGY TEST
     Dosage: ?          OTHER DOSE:6.0X10E-5M;?
     Route: 023
  2. PENICILLIN G [Suspect]
     Active Substance: PENICILLIN G

REACTIONS (2)
  - Skin reaction [None]
  - Skin test positive [None]

NARRATIVE: CASE EVENT DATE: 20190513
